FAERS Safety Report 8888505 (Version 1)
Quarter: 2012Q4

REPORT INFORMATION
  Report Type: 
  Country: US (occurrence: US)
  Receive Date: 20121106
  Receipt Date: 20121106
  Transmission Date: 20130627
  Serious: Yes (Other)
  Sender: FDA-Public Use
  Company Number: US-JUTA-2012-18540

PATIENT
  Age: 18 Year
  Sex: Male

DRUGS (1)
  1. MORPHINE SULFATE (UNKNOWN) [Suspect]
     Indication: PRODUCT USED FOR UNKNOWN INDICATION
     Dosage: UNK
     Route: 045

REACTIONS (9)
  - Deafness [Recovered/Resolved]
  - Drug abuse [Recovered/Resolved]
  - Mental status changes [Recovered/Resolved]
  - Depressed level of consciousness [Unknown]
  - Tachycardia [Unknown]
  - Hypotension [Unknown]
  - Renal impairment [Unknown]
  - Troponin increased [Unknown]
  - Transaminases increased [Unknown]
